FAERS Safety Report 6572818-0 (Version None)
Quarter: 2010Q1

REPORT INFORMATION
  Report Type: 
  Country: None (occurrence: None)
  Receive Date: 20100205
  Receipt Date: 20100127
  Transmission Date: 20100710
  Serious: Yes (Life-Threatening, Hospitalization)
  Sender: FDA-Public Use
  Company Number: US-GENENTECH-296928

PATIENT
  Sex: Female
  Weight: 94.3 kg

DRUGS (13)
  1. RITUXIMAB [Suspect]
     Indication: RHEUMATOID ARTHRITIS
     Dosage: 1000 MG, X2
     Route: 042
     Dates: start: 20030101
  2. RITUXIMAB [Suspect]
     Dosage: 1000 MG, DAYS 1+15
     Route: 042
     Dates: start: 20050216
  3. METHOTREXATE [Suspect]
     Indication: RHEUMATOID ARTHRITIS
     Dosage: 10 MG, UNK
     Route: 048
     Dates: start: 20090127, end: 20091001
  4. METHYLPREDNISOLONE [Suspect]
     Indication: RHEUMATOID ARTHRITIS
     Dosage: 100 MG, DAYS 1+15
     Route: 042
     Dates: start: 20050216
  5. FOLIC ACID [Concomitant]
     Indication: RHEUMATOID ARTHRITIS
     Dosage: 1 MG, QD
     Route: 048
     Dates: start: 20010101, end: 20091001
  6. FOLIC ACID [Concomitant]
     Dosage: UNK
     Route: 048
     Dates: start: 20010101
  7. NORCO [Concomitant]
     Indication: RHEUMATOID ARTHRITIS
     Dosage: 335 MG, PRN
     Route: 048
     Dates: start: 20070914
  8. CRYSELLE [Concomitant]
     Indication: CONTRACEPTION
     Dosage: UNK TABLET, UNK
     Route: 048
     Dates: start: 20090122, end: 20091221
  9. AVINZA [Concomitant]
     Indication: DRUG USE FOR UNKNOWN INDICATION
     Dosage: UNK
     Dates: start: 20090706
  10. PREDNISONE [Concomitant]
     Indication: DRUG USE FOR UNKNOWN INDICATION
     Dosage: UNK
     Dates: start: 20080118
  11. TRAZODONE [Concomitant]
     Indication: DRUG USE FOR UNKNOWN INDICATION
     Dosage: UNK
     Dates: start: 20080201, end: 20091023
  12. KLONOPIN [Concomitant]
     Indication: DRUG USE FOR UNKNOWN INDICATION
     Dosage: UNK
     Dates: start: 20090624
  13. CYMBALTA [Concomitant]
     Indication: DRUG USE FOR UNKNOWN INDICATION
     Dosage: UNK
     Dates: start: 20090916, end: 20091022

REACTIONS (1)
  - SUICIDAL IDEATION [None]
